FAERS Safety Report 8320928-X (Version None)
Quarter: 2012Q2

REPORT INFORMATION
  Report Type: 
  Country: None (occurrence: None)
  Receive Date: 20120430
  Receipt Date: 20120420
  Transmission Date: 20120825
  Serious: Yes (Disabling, Other)
  Sender: FDA-Public Use
  Company Number: US-JNJFOC-20120409930

PATIENT

DRUGS (8)
  1. TOPAMAX [Suspect]
     Indication: PRODUCT USED FOR UNKNOWN INDICATION
     Route: 048
  2. CELEXA [Concomitant]
     Route: 065
  3. NEURONTIN [Suspect]
     Indication: PRODUCT USED FOR UNKNOWN INDICATION
     Dosage: 1BID AND 3 TABS QHS
     Route: 065
  4. VALIUM [Concomitant]
     Route: 065
  5. LIPITOR [Concomitant]
     Route: 065
  6. FLONASE [Concomitant]
     Route: 065
  7. NEXIUM [Concomitant]
     Route: 065
  8. PERCOCET [Concomitant]
     Route: 065

REACTIONS (8)
  - ARTHRITIS [None]
  - INTERVERTEBRAL DISC PROTRUSION [None]
  - ANXIETY [None]
  - DEPRESSION [None]
  - INTERVERTEBRAL DISC DEGENERATION [None]
  - PANIC ATTACK [None]
  - SCIATICA [None]
  - EXOSTOSIS [None]
